FAERS Safety Report 5149579-5 (Version None)
Quarter: 2006Q4

REPORT INFORMATION
  Report Type: 
  Country: None (occurrence: None)
  Receive Date: 20061113
  Receipt Date: 20060515
  Transmission Date: 20070319
  Serious: No
  Sender: FDA-Public Use
  Company Number: US-GLAXOSMITHKLINE-A0605634A

PATIENT
  Age: 65 Year
  Sex: Female

DRUGS (9)
  1. COREG [Suspect]
     Indication: CARDIAC FAILURE CONGESTIVE
     Dosage: 3.125MG TWICE PER DAY
     Route: 048
     Dates: start: 20050628
  2. CAFFEINE [Suspect]
  3. LISINOPRIL [Suspect]
     Indication: CARDIAC FAILURE CONGESTIVE
     Dosage: 5MG TWICE PER DAY
     Route: 048
     Dates: start: 20050617
  4. TUMS [Suspect]
  5. SPIRONOLACTONE [Concomitant]
  6. FUROSEMIDE [Concomitant]
  7. ASPIRIN [Concomitant]
  8. PLAVIX [Concomitant]
  9. DULCOLAX [Concomitant]

REACTIONS (10)
  - ABDOMINAL DISTENSION [None]
  - ANOREXIA [None]
  - ASTHENIA [None]
  - CARDIAC DISORDER [None]
  - DISABILITY [None]
  - DYSPNOEA [None]
  - HEART RATE DECREASED [None]
  - MALAISE [None]
  - MOBILITY DECREASED [None]
  - PALPITATIONS [None]
